FAERS Safety Report 18747357 (Version 1)
Quarter: 2021Q1

REPORT INFORMATION
  Report Type: Report from Study
  Country: CA (occurrence: CA)
  Receive Date: 20210115
  Receipt Date: 20210115
  Transmission Date: 20210419
  Serious: Yes (Hospitalization, Other)
  Sender: FDA-Public Use
  Company Number: CA-TAKEDA-CA201400433

PATIENT
  Age: 16 Year
  Sex: Male
  Weight: 29.5 kg

DRUGS (27)
  1. IDURSULFASE [Suspect]
     Active Substance: IDURSULFASE
     Dosage: 0.64 MILLIGRAM/KILOGRAM, 1X/WEEK
     Route: 041
     Dates: start: 20120110
  2. MELATONIN [Concomitant]
     Active Substance: MELATONIN
     Indication: SLEEP DISORDER
     Dosage: 2 MG, 1X/DAY:QD
     Route: 048
     Dates: start: 200803
  3. CHOLECALCIFEROL [Concomitant]
     Active Substance: CHOLECALCIFEROL
     Indication: SUPPLEMENTATION THERAPY
     Dosage: 400 MG, 1X/DAY:QD
     Route: 050
  4. LACTULOSE. [Concomitant]
     Active Substance: LACTULOSE
     Indication: SUPPLEMENTATION THERAPY
     Dosage: 10 ML, 2X/DAY:BID
     Route: 050
  5. IDURSULFASE [Suspect]
     Active Substance: IDURSULFASE
     Dosage: 12 MILLIGRAM, 1X/WEEK
     Route: 041
     Dates: start: 20080813
  6. PULMICORT TURBUHALER [Concomitant]
     Active Substance: BUDESONIDE
     Indication: RESPIRATORY DISORDER
     Dosage: 1 MG, 2X/DAY:BID
     Route: 055
     Dates: start: 2008
  7. ACETAMINOPHEN. [Concomitant]
     Active Substance: ACETAMINOPHEN
     Dosage: 350 MG, UNKNOWN
     Route: 050
     Dates: start: 20081217
  8. SALBUTAMOL [Concomitant]
     Active Substance: ALBUTEROL
     Indication: PREMEDICATION
     Dosage: 0.9 ML, AS REQ^D
     Route: 055
     Dates: start: 20080813
  9. IDURSULFASE [Suspect]
     Active Substance: IDURSULFASE
     Dosage: 0.5 MILLIGRAM/KILOGRAM, 1/WEEK
     Route: 042
     Dates: start: 20080813, end: 20090909
  10. DIPHENHYDRAMINE. [Concomitant]
     Active Substance: DIPHENHYDRAMINE
     Indication: PREMEDICATION
     Dosage: 37.5 MG, AS REQ^D
     Route: 065
     Dates: start: 20081001
  11. MELATONIN [Concomitant]
     Active Substance: MELATONIN
     Dosage: 6 MG, 1X/DAY:QD
     Route: 050
  12. FLONASE [Concomitant]
     Active Substance: FLUTICASONE PROPIONATE
     Indication: RESPIRATORY DISORDER
     Dosage: 50 ?G, 2X/DAY:BID
     Route: 055
     Dates: start: 2007
  13. VENTOLIN [Concomitant]
     Active Substance: ALBUTEROL SULFATE
     Indication: RESPIRATORY DISORDER
     Dosage: 1 DF (ONE PUFF), AS REQ^D
     Route: 055
     Dates: start: 2005
  14. ACETAMINOPHEN. [Concomitant]
     Active Substance: ACETAMINOPHEN
     Indication: PREMEDICATION
     Dosage: 350 MG, AS REQ^D
     Route: 048
     Dates: start: 20080822
  15. ACETAMINOPHEN. [Concomitant]
     Active Substance: ACETAMINOPHEN
     Dosage: 450 MG, AS REQ^D
     Route: 048
     Dates: start: 20130813, end: 20130911
  16. ACETAMINOPHEN. [Concomitant]
     Active Substance: ACETAMINOPHEN
     Dosage: 350 MG, AS REQ^D
     Route: 050
     Dates: start: 20080911
  17. GABAPENTIN. [Concomitant]
     Active Substance: GABAPENTIN
     Indication: PAIN
     Dosage: 300 MG, 1X/DAY:QD
     Route: 050
  18. IDURSULFASE [Suspect]
     Active Substance: IDURSULFASE
     Indication: MUCOPOLYSACCHARIDOSIS II
     Dosage: 0.7 MILLIGRAM/KILOGRAM, 1X/WEEK
     Route: 041
     Dates: start: 20140227
  19. TEGRETOL [Concomitant]
     Active Substance: CARBAMAZEPINE
     Dosage: 140 MG, 1X/DAY:QD (IN THE PM)
     Route: 048
     Dates: start: 20070514
  20. ZANTAC [Concomitant]
     Active Substance: RANITIDINE HYDROCHLORIDE
     Indication: GASTROINTESTINAL DISORDER
     Dosage: 30 MG, 1X/DAY:QD
     Route: 048
     Dates: start: 2006
  21. ATROVENT [Concomitant]
     Active Substance: IPRATROPIUM BROMIDE
     Indication: NASAL CONGESTION
     Dosage: UNK (0.03 SPRAY), OTHER (2?3 TIMES DAILY)
     Route: 045
     Dates: start: 20110611
  22. METHYLPREDNISOLONE. [Concomitant]
     Active Substance: METHYLPREDNISOLONE
     Indication: PREMEDICATION
     Dosage: 40 MG, AS REQ^D
     Route: 042
     Dates: start: 20081127
  23. CLONAZEPAM. [Concomitant]
     Active Substance: CLONAZEPAM
     Indication: SLEEP DISORDER
     Dosage: 0.2 MG, 1X/DAY:QD
     Route: 050
  24. IDURSULFASE [Suspect]
     Active Substance: IDURSULFASE
     Dosage: 0.5 MILLIGRAM/KILOGRAM, 1/WEEK
     Route: 042
     Dates: start: 20090914, end: 20100719
  25. IDURSULFASE [Suspect]
     Active Substance: IDURSULFASE
     Dosage: 0.5 MILLIGRAM/KILOGRAM, 1/WEEK
     Route: 042
     Dates: start: 20100726
  26. PREDNISONE. [Concomitant]
     Active Substance: PREDNISONE
     Indication: PREMEDICATION
     Dosage: 30 MG, 1X/WEEK (AT NIGHT BEFORE INFUSIONS)
     Route: 048
     Dates: start: 20120304
  27. TEGRETOL [Concomitant]
     Active Substance: CARBAMAZEPINE
     Indication: NERVOUS SYSTEM DISORDER
     Dosage: 100 MG, 1X/DAY:QD (IN THE AM)
     Route: 048
     Dates: start: 20070514

REACTIONS (6)
  - Gastric infection [Recovered/Resolved with Sequelae]
  - Stridor [Not Recovered/Not Resolved]
  - Viral infection [Not Recovered/Not Resolved]
  - Respiratory distress [Not Recovered/Not Resolved]
  - Influenza [Recovered/Resolved with Sequelae]
  - Pneumonia [Recovered/Resolved]

NARRATIVE: CASE EVENT DATE: 20140201
